FAERS Safety Report 18169090 (Version 1)
Quarter: 2020Q3

REPORT INFORMATION
  Report Type: Spontaneous
  Country: US (occurrence: US)
  Receive Date: 20200818
  Receipt Date: 20200818
  Transmission Date: 20201103
  Serious: Yes (Other)
  Sender: FDA-Public Use
  Company Number: None

PATIENT
  Age: 10 Month
  Sex: Male
  Weight: 8 kg

DRUGS (1)
  1. TRIHEPTANOIN. [Suspect]
     Active Substance: TRIHEPTANOIN
     Indication: CARNITINE-ACYLCARNITINE TRANSLOCASE DEFICIENCY
     Dates: start: 20170807

REACTIONS (5)
  - Irritability [None]
  - Hyperammonaemia [None]
  - Vomiting [None]
  - Metabolic acidosis [None]
  - Carbon dioxide decreased [None]

NARRATIVE: CASE EVENT DATE: 20170913
